FAERS Safety Report 8071392-X (Version None)
Quarter: 2012Q1

REPORT INFORMATION
  Report Type: 
  Country: None (occurrence: None)
  Receive Date: 20120119
  Receipt Date: 20120111
  Transmission Date: 20120608
  Serious: Yes (Death, Other)
  Sender: FDA-Public Use
  Company Number: MSTR-NO-1112S-0266

PATIENT
  Age: 69 Year
  Sex: Male
  Weight: 71 kg

DRUGS (4)
  1. OXYCODONE HCL [Concomitant]
  2. LEVOFLOXACIN [Concomitant]
  3. GABEXATE (GABEXATE) [Concomitant]
  4. METASTRON [Suspect]
     Indication: METASTATIC PAIN
     Dosage: 141 MBQ, SINGLE DOSE, INTRAVENOUS
     Route: 042
     Dates: start: 20111110, end: 20111110

REACTIONS (3)
  - DISSEMINATED INTRAVASCULAR COAGULATION [None]
  - PLATELET COUNT DECREASED [None]
  - ANAEMIA [None]
